FAERS Safety Report 8580502-7 (Version None)
Quarter: 2012Q3

REPORT INFORMATION
  Report Type: 
  Country: None (occurrence: None)
  Receive Date: 20120808
  Receipt Date: 20120730
  Transmission Date: 20120928
  Serious: Yes (Other)
  Sender: FDA-Public Use
  Company Number: JP-BAXTER-2012BAX013394

PATIENT
  Sex: Male

DRUGS (4)
  1. THIOPENTAL SODIUM [Concomitant]
     Indication: ARTHROSCOPIC SURGERY
     Route: 042
  2. FENTANYL [Concomitant]
     Indication: ARTHROSCOPIC SURGERY
     Route: 042
  3. SEVOFLURANE [Concomitant]
     Indication: ARTHROSCOPIC SURGERY
     Route: 055
  4. ARTHROMATIC IRRIGATION [Suspect]
     Indication: ARTHROSCOPIC SURGERY
     Route: 014
     Dates: start: 20120727, end: 20120727

REACTIONS (1)
  - PULMONARY OEDEMA [None]
